FAERS Safety Report 5787974-1 (Version None)
Quarter: 2008Q2

REPORT INFORMATION
  Report Type: 
  Country: None (occurrence: None)
  Receive Date: 20080625
  Receipt Date: 20080617
  Transmission Date: 20081010
  Serious: Yes (Hospitalization)
  Sender: FDA-Public Use
  Company Number: CA-JNJFOC-20080602734

PATIENT
  Age: 46 Year
  Sex: Female
  Weight: 75 kg

DRUGS (10)
  1. REMICADE [Suspect]
     Indication: RHEUMATOID ARTHRITIS
     Route: 042
  2. IMURAN [Concomitant]
     Indication: PSORIATIC ARTHROPATHY
     Route: 048
  3. ACTONEL [Concomitant]
     Route: 048
  4. CALCIUM [Concomitant]
     Route: 048
  5. CELEBREX [Concomitant]
     Route: 048
  6. TIAZAC [Concomitant]
  7. SYNTHROID [Concomitant]
  8. CRESTOR [Concomitant]
  9. ASPIRIN [Concomitant]
  10. LOSEC I.V. [Concomitant]

REACTIONS (1)
  - CLOSTRIDIUM DIFFICILE COLITIS [None]
